FAERS Safety Report 5234435-4 (Version None)
Quarter: 2007Q1

REPORT INFORMATION
  Report Type: 
  Country: None (occurrence: None)
  Receive Date: 20070209
  Receipt Date: 20070206
  Transmission Date: 20070707
  Serious: Yes (Other)
  Sender: FDA-Public Use
  Company Number: US-GLAXOSMITHKLINE-A0638582A

PATIENT
  Sex: Male

DRUGS (8)
  1. LOTRONEX [Suspect]
     Indication: IRRITABLE BOWEL SYNDROME
     Dosage: 1MG PER DAY
     Route: 048
     Dates: start: 20050301
  2. SYNTHROID [Concomitant]
  3. PLENDIL [Concomitant]
  4. FLOMAX [Concomitant]
  5. DIOVAN [Concomitant]
  6. PROCRIT [Concomitant]
  7. PROSCAR [Concomitant]
  8. EXELON [Concomitant]

REACTIONS (3)
  - DIARRHOEA [None]
  - DRUG INEFFECTIVE [None]
  - FAECAL INCONTINENCE [None]
